FAERS Safety Report 9060095 (Version 1)
Quarter: 2013Q1

REPORT INFORMATION
  Report Type: Spontaneous
  Country: US (occurrence: None)
  Receive Date: 20130207
  Receipt Date: 20130207
  Transmission Date: 20140127
  Serious: Yes (Life-Threatening, Hospitalization)
  Sender: FDA-Public Use
  Company Number: None

PATIENT
  Sex: Male
  Weight: 72.58 kg

DRUGS (3)
  1. PEGASYS GENENTECH (ROCHE) [Suspect]
     Indication: HEPATITIS
     Dosage: 180 MCG 1/WEEK INTRAVENOUS
     Route: 042
     Dates: start: 20120103, end: 20120528
  2. RHINOCORT [Suspect]
     Dosage: 800/1000 DAILY ORAL
  3. INCIVEK [Suspect]
     Dosage: DAILY ORAL
     Route: 048

REACTIONS (2)
  - Chest pain [None]
  - Coronary artery occlusion [None]
